FAERS Safety Report 6862137-7 (Version None)
Quarter: 2010Q3

REPORT INFORMATION
  Report Type: 
  Country: None (occurrence: None)
  Receive Date: 20100719
  Receipt Date: 20100706
  Transmission Date: 20110219
  Serious: Yes (Hospitalization)
  Sender: FDA-Public Use
  Company Number: 7010215

PATIENT
  Age: 43 Year
  Sex: Female
  Weight: 83 kg

DRUGS (13)
  1. REBIF [Suspect]
     Indication: MULTIPLE SCLEROSIS
     Dosage: 44 MCG, 3 IN 1 WK, SUBCUTANEOUS
     Route: 058
     Dates: start: 20031212
  2. SYNTHROID [Concomitant]
  3. FOLIC ACID [Concomitant]
  4. BUSPAR [Concomitant]
  5. ATIVAN [Concomitant]
  6. TEGRETOL [Concomitant]
  7. NUVIGIL [Concomitant]
  8. LYRICA [Concomitant]
  9. BACLOFEN [Concomitant]
  10. CHOLESTEROL MEDICATION (ALL OTHER THERAPEUTIC PRODUCTS) [Concomitant]
  11. CELEXA [Concomitant]
  12. ADVAIR HFA [Concomitant]
  13. PRO AIR (ALL OTHER THERAPEUTIC PRODUCTS) [Concomitant]

REACTIONS (12)
  - CONTUSION [None]
  - CYSTITIS [None]
  - DIZZINESS [None]
  - ESCHERICHIA INFECTION [None]
  - FALL [None]
  - FATIGUE [None]
  - GASTROENTERITIS ESCHERICHIA COLI [None]
  - GLUCOSE TOLERANCE IMPAIRED [None]
  - INJECTION SITE ERYTHEMA [None]
  - LACERATION [None]
  - RECTAL HAEMORRHAGE [None]
  - WEIGHT DECREASED [None]
